FAERS Safety Report 13884711 (Version 1)
Quarter: 2017Q3

REPORT INFORMATION
  Report Type: Spontaneous
  Country: US (occurrence: US)
  Receive Date: 20170821
  Receipt Date: 20170821
  Transmission Date: 20171127
  Serious: No
  Sender: FDA-Public Use
  Company Number: US-ASTRAZENECA-2017SE84100

PATIENT
  Age: 93 Year
  Sex: Female
  Weight: 63.5 kg

DRUGS (4)
  1. VITAMINS NOS [Concomitant]
     Active Substance: VITAMINS
     Indication: ROUTINE HEALTH MAINTENANCE
  2. ASPIRIN. [Concomitant]
     Active Substance: ASPIRIN
  3. ACETYLSALICYLIC ACID [Concomitant]
     Active Substance: ASPIRIN
     Indication: CARDIAC DISORDER
  4. RHINOCORT ALLERGY [Suspect]
     Active Substance: BUDESONIDE
     Indication: MULTIPLE ALLERGIES
     Dosage: 3 IN 1 DAY
     Route: 045
     Dates: start: 20170226

REACTIONS (5)
  - Rash [Unknown]
  - Inappropriate schedule of drug administration [Unknown]
  - Erythema [Unknown]
  - Nasal pruritus [Unknown]
  - Incorrect dose administered [Unknown]
